FAERS Safety Report 8605584 (Version 6)
Quarter: 2012Q4

REPORT INFORMATION
  Report Type: Report from Study
  Country: US (occurrence: US)
  Receive Date: 20120608
  Receipt Date: 20121120
  Transmission Date: 20130627
  Serious: Yes (Hospitalization)
  Sender: FDA-Public Use
  Company Number: US-JNJFOC-20120601053

PATIENT
  Age: 16 Year
  Sex: Male
  Weight: 67.4 kg

DRUGS (1)
  1. REMICADE [Suspect]
     Indication: COLITIS ULCERATIVE
     Route: 065
     Dates: start: 20110420

REACTIONS (1)
  - Colitis ulcerative [Recovered/Resolved with Sequelae]
